FAERS Safety Report 14783438 (Version 1)
Quarter: 2018Q2

REPORT INFORMATION
  Report Type: Spontaneous
  Country: US (occurrence: US)
  Receive Date: 20180420
  Receipt Date: 20180420
  Transmission Date: 20180711
  Serious: Yes (Hospitalization)
  Sender: FDA-Public Use
  Company Number: US-JNJFOC-20180423813

PATIENT
  Age: 62 Year
  Sex: Male

DRUGS (1)
  1. INVOKANA [Suspect]
     Active Substance: CANAGLIFLOZIN
     Indication: PRODUCT USED FOR UNKNOWN INDICATION
     Route: 048

REACTIONS (4)
  - Diabetic ulcer [Unknown]
  - Osteomyelitis [Unknown]
  - Toe amputation [Unknown]
  - Extremity necrosis [Unknown]

NARRATIVE: CASE EVENT DATE: 201607
